FAERS Safety Report 8208670-7 (Version None)
Quarter: 2012Q1

REPORT INFORMATION
  Report Type: 
  Country: None (occurrence: None)
  Receive Date: 20120314
  Receipt Date: 20120306
  Transmission Date: 20120608
  Serious: Yes (Hospitalization)
  Sender: FDA-Public Use
  Company Number: US-BAYER-2011-090905

PATIENT
  Age: 24 Year
  Sex: Female
  Weight: 71.202 kg

DRUGS (12)
  1. YAZ [Suspect]
     Dosage: UNK
     Dates: start: 20090301
  2. YASMIN [Suspect]
     Dosage: UNK
     Dates: start: 20090301
  3. YAZ [Suspect]
     Dosage: UNK
     Dates: start: 20090701
  4. YAZ [Suspect]
     Dosage: UNK
     Dates: start: 20080601, end: 20081201
  5. YASMIN [Suspect]
     Dosage: UNK
     Dates: start: 20070301
  6. PIRONAL [ALLOBARBITAL,AMINOPHENAZONE] [Concomitant]
  7. YAZ [Suspect]
     Indication: CONTRACEPTION
     Dosage: UNK
     Dates: start: 20060401, end: 20070101
  8. YASMIN [Suspect]
     Indication: CONTRACEPTION
     Dosage: UNK
     Dates: start: 20060401, end: 20070101
  9. YAZ [Suspect]
     Dosage: UNK
     Dates: start: 20070301
  10. YASMIN [Suspect]
     Dosage: UNK
     Dates: start: 20090701
  11. ADIPEX-P [Concomitant]
  12. YASMIN [Suspect]
     Dosage: UNK
     Dates: start: 20080601, end: 20081201

REACTIONS (4)
  - FEAR [None]
  - ABDOMINAL PAIN [None]
  - BILE DUCT STONE [None]
  - CHOLECYSTITIS [None]
